FAERS Safety Report 8711150 (Version 2)
Quarter: 2013Q4

REPORT INFORMATION
  Report Type: Spontaneous
  Country: US (occurrence: US)
  Receive Date: 20120807
  Receipt Date: 20131031
  Transmission Date: 20140711
  Serious: No
  Sender: FDA-Public Use
  Company Number: US-009507513-2012SP035902

PATIENT
  Age: 66 Year
  Sex: Female
  Weight: 98.87 kg

DRUGS (14)
  1. CLARITIN [Suspect]
     Indication: UPPER-AIRWAY COUGH SYNDROME
     Dosage: 10 MG, QD
     Route: 048
     Dates: start: 20120503
  2. CLARITIN [Suspect]
     Indication: MEDICAL OBSERVATION
  3. CLARITIN [Suspect]
     Indication: INCREASED UPPER AIRWAY SECRETION
  4. CLARITIN [Suspect]
     Indication: NASAL CONGESTION
  5. CLARITIN [Suspect]
     Indication: COUGH
  6. PRILOSEC [Concomitant]
     Indication: GASTROOESOPHAGEAL REFLUX DISEASE
     Dosage: UNK, UNKNOWN
  7. SYNTHROID [Concomitant]
     Indication: HYPOTHYROIDISM
     Dosage: UNK, UNKNOWN
  8. AMOXAPINE [Concomitant]
     Indication: PRODUCT USED FOR UNKNOWN INDICATION
     Dosage: UNK, UNKNOWN
  9. DILTIAZEM HYDROCHLORIDE [Concomitant]
     Indication: BLOOD PRESSURE
     Dosage: 2 DF, UNKNOWN
  10. NAMENDA [Concomitant]
     Indication: MEMORY IMPAIRMENT
     Dosage: UNK, UNKNOWN
  11. CYMBALTA [Concomitant]
     Indication: FIBROMYALGIA
     Dosage: UNK, UNKNOWN
  12. LIBRAX CAPSULES [Concomitant]
     Indication: IRRITABLE BOWEL SYNDROME
     Dosage: UNK, PRN
  13. VANQUISH [Concomitant]
     Indication: HEADACHE
     Dosage: UNK, UNKNOWN
  14. BAYER SELECT PAIN RELIEF FORMULA [Concomitant]
     Indication: HEADACHE
     Dosage: UNK, UNKNOWN

REACTIONS (2)
  - Drug ineffective for unapproved indication [Unknown]
  - Drug ineffective [Unknown]
